FAERS Safety Report 23126802 (Version 1)
Quarter: 2023Q4

REPORT INFORMATION
  Report Type: Spontaneous
  Country: US (occurrence: US)
  Receive Date: 20231030
  Receipt Date: 20231030
  Transmission Date: 20240110
  Serious: No
  Sender: FDA-Public Use
  Company Number: US-WOODWARD-2023-US-015882

PATIENT
  Age: 56 Year
  Sex: 0
  Weight: 70.76 kg

DRUGS (1)
  1. COREG CR [Suspect]
     Active Substance: CARVEDILOL PHOSPHATE
     Indication: Congenital coronary artery malformation
     Dosage: DOSE AND FREQUENCY UNKNOWN
     Route: 065
     Dates: start: 2006

REACTIONS (15)
  - Rash [Unknown]
  - Dyspnoea [Unknown]
  - Hyperhidrosis [Unknown]
  - Vision blurred [Unknown]
  - Hypersensitivity [Unknown]
  - Rash [Unknown]
  - Pruritus [Unknown]
  - Neutrophil count abnormal [Unknown]
  - Chest pain [Unknown]
  - Headache [Unknown]
  - Nausea [Unknown]
  - Swelling [Unknown]
  - Skin hyperpigmentation [Unknown]
  - Fatigue [Unknown]
  - Abdominal discomfort [Unknown]

NARRATIVE: CASE EVENT DATE: 20230401
